FAERS Safety Report 4283138-1 (Version None)
Quarter: 2004Q1

REPORT INFORMATION
  Report Type: 
  Country: None (occurrence: None)
  Receive Date: 20040120
  Receipt Date: 20040105
  Transmission Date: 20041129
  Serious: Yes (Other)
  Sender: FDA-Public Use
  Company Number: 600969

PATIENT
  Age: 30 Year
  Sex: Male

DRUGS (39)
  1. HEMOFIL [Suspect]
     Dosage: INTERMITTENT; INTRAVENOUS
     Route: 042
     Dates: start: 19770101, end: 19860101
  2. HEMOFIL M [Suspect]
     Indication: COAGULOPATHY
     Dosage: INTERMITTENT; INTRAVENOUS
     Route: 042
     Dates: start: 19941203, end: 19961226
  3. HEMOFIL M [Suspect]
  4. HEMOFIL M [Suspect]
  5. HEMOFIL M [Suspect]
  6. HEMOFIL M [Suspect]
  7. HEMOFIL M [Suspect]
  8. HEMOFIL M [Suspect]
  9. HEMOFIL M [Suspect]
  10. ANTIHEMOPHILIC FACTOR (HUMAN) [Suspect]
     Dosage: INTERMITTENT
     Dates: start: 19790101, end: 19990101
  11. ANTIHEMOPHILIC FACTOR (HUMAN) [Suspect]
  12. ANTIHEMOPHILIC FACTOR (HUMAN) [Suspect]
  13. ANTIHEMOPHILIC FACTOR (HUMAN) [Suspect]
  14. ANTIHEMOPHILIC FACTOR (HUMAN) [Suspect]
  15. ANTIHEMOPHILIC FACTOR (HUMAN) [Suspect]
  16. ANTIHEMOPHILIC FACTOR (HUMAN) [Suspect]
  17. ANTIHEMOPHILIC FACTOR (HUMAN) [Suspect]
  18. ANTIHEMOPHILIC FACTOR (HUMAN) [Suspect]
  19. ANTIHEMOPHILIC FACTOR (HUMAN) [Suspect]
  20. ANTIHEMOPHILIC FACTOR (HUMAN) [Suspect]
  21. ANTIHEMOPHILIC FACTOR (HUMAN) [Suspect]
  22. ANTIHEMOPHILIC FACTOR (HUMAN) [Suspect]
  23. ANTIHEMOPHILIC FACTOR (HUMAN) [Suspect]
  24. ANTIHEMOPHILIC FACTOR (HUMAN) [Suspect]
  25. ANTIHEMOPHILIC FACTOR (HUMAN) [Suspect]
  26. ANTIHEMOPHILIC FACTOR (HUMAN) [Suspect]
  27. ANTIHEMOPHILIC FACTOR (HUMAN) [Suspect]
  28. ANTIHEMOPHILIC FACTOR (HUMAN) [Suspect]
  29. ANTIHEMOPHILIC FACTOR (HUMAN) [Suspect]
  30. ANTIHEMOPHILIC FACTOR (HUMAN) [Suspect]
  31. ANTIHEMOPHILIC FACTOR (HUMAN) [Suspect]
  32. ANTIHEMOPHILIC FACTOR (HUMAN) [Suspect]
  33. ANTIHEMOPHILIC FACTOR (HUMAN) [Suspect]
  34. ANTIHEMOPHILIC FACTOR (HUMAN) [Suspect]
  35. ANTIHEMOPHILIC FACTOR (HUMAN) [Suspect]
  36. ANTIHEMOPHILIC FACTOR (HUMAN) [Suspect]
  37. ANTIHEMOPHILIC FACTOR (HUMAN) [Suspect]
  38. ANTIHEMOPHILIC FACTOR (HUMAN) [Suspect]
  39. ANTIHEMOPHILIC FACTOR (HUMAN) [Suspect]

REACTIONS (1)
  - HEPATITIS C POSITIVE [None]
